FAERS Safety Report 7544042-6 (Version None)
Quarter: 2011Q2

REPORT INFORMATION
  Report Type: 
  Country: None (occurrence: None)
  Receive Date: 20110613
  Receipt Date: 20050907
  Transmission Date: 20111010
  Serious: Yes (Death, Other)
  Sender: FDA-Public Use
  Company Number: PHHO2005IN14080

PATIENT
  Sex: Male

DRUGS (1)
  1. GLEEVEC [Suspect]
     Route: 048

REACTIONS (4)
  - DRUG INEFFECTIVE [None]
  - FULL BLOOD COUNT ABNORMAL [None]
  - SPLENOMEGALY [None]
  - BLAST CRISIS IN MYELOGENOUS LEUKAEMIA [None]
